FAERS Safety Report 24366254 (Version 1)
Quarter: 2024Q3

REPORT INFORMATION
  Report Type: Spontaneous
  Country: RO (occurrence: RO)
  Receive Date: 20240926
  Receipt Date: 20240926
  Transmission Date: 20241017
  Serious: Yes (Other)
  Sender: PFIZER
  Company Number: RO-PFIZER INC-PV202400123411

PATIENT
  Sex: Male

DRUGS (1)
  1. LORLATINIB [Suspect]
     Active Substance: LORLATINIB
     Indication: Lung neoplasm malignant
     Dosage: UNK
     Dates: start: 202208

REACTIONS (3)
  - Brain oedema [Unknown]
  - Brain radiation necrosis [Unknown]
  - Neoplasm progression [Unknown]

NARRATIVE: CASE EVENT DATE: 20230301
